FAERS Safety Report 5028961-0 (Version None)
Quarter: 2006Q2

REPORT INFORMATION
  Report Type: 
  Country: None (occurrence: None)
  Receive Date: 20060619
  Receipt Date: 20040531
  Transmission Date: 20061013
  Serious: Yes (Death, Other)
  Sender: FDA-Public Use
  Company Number: DK-BRISTOL-MYERS SQUIBB COMPANY-13353198

PATIENT
  Age: 51 Year
  Sex: Male

DRUGS (2)
  1. STAVUDINE [Suspect]
  2. LAMIVUDINE [Suspect]

REACTIONS (2)
  - PANCREATITIS [None]
  - PURULENT PERICARDITIS [None]
